FAERS Safety Report 17417697 (Version 1)
Quarter: 2020Q1

REPORT INFORMATION
  Report Type: Report from Study
  Country: IN (occurrence: IN)
  Receive Date: 20200214
  Receipt Date: 20200214
  Transmission Date: 20200409
  Serious: Yes (Death, Other)
  Sender: FDA-Public Use
  Company Number: IN-EISAI MEDICAL RESEARCH-EC-2020-069906

PATIENT
  Age: 66 Year
  Sex: Female

DRUGS (2)
  1. INSULIN [Concomitant]
     Active Substance: INSULIN NOS
  2. LENVIMA [Suspect]
     Active Substance: LENVATINIB
     Indication: THYROID CANCER
     Route: 048
     Dates: start: 20190726, end: 20191115

REACTIONS (5)
  - Renal failure [Not Recovered/Not Resolved]
  - Feeding disorder [Unknown]
  - Malignant neoplasm progression [Fatal]
  - Loss of consciousness [Unknown]
  - Gallbladder rupture [Unknown]

NARRATIVE: CASE EVENT DATE: 2019
